FAERS Safety Report 4867688-2 (Version None)
Quarter: 2005Q4

REPORT INFORMATION
  Report Type: 
  Country: None (occurrence: None)
  Receive Date: 20051222
  Receipt Date: 19980324
  Transmission Date: 20060501
  Serious: Yes (Death, Hospitalization)
  Sender: FDA-Public Use
  Company Number: 8-97316-001G

PATIENT
  Age: 24 Year
  Sex: Male
  Weight: 70 kg

DRUGS (1)
  1. MYLOTARG [Suspect]
     Indication: ACUTE MYELOID LEUKAEMIA
     Dosage: 9 MG/M 2, INTRAVENOUS
     Route: 042
     Dates: start: 19971105, end: 19971105

REACTIONS (11)
  - BACK PAIN [None]
  - BACTERAEMIA [None]
  - BONE PAIN [None]
  - BRADYCARDIA [None]
  - DYSPHAGIA [None]
  - HYPERKALAEMIA [None]
  - HYPOPHOSPHATAEMIA [None]
  - HYPOTENSION [None]
  - PAIN [None]
  - PANCYTOPENIA [None]
  - TACHYCARDIA [None]
